FAERS Safety Report 24233703 (Version 1)
Quarter: 2024Q3

REPORT INFORMATION
  Report Type: Spontaneous
  Country: US (occurrence: US)
  Receive Date: 20240821
  Receipt Date: 20240821
  Transmission Date: 20241016
  Serious: No
  Sender: PERRIGO
  Company Number: US-PERRIGO-24US006714

PATIENT
  Age: 56 Year
  Sex: Female
  Weight: 47.619 kg

DRUGS (3)
  1. MINOXIDIL [Suspect]
     Active Substance: MINOXIDIL
     Indication: Hair growth abnormal
     Dosage: 1 ML, BID
     Route: 048
     Dates: start: 20240512, end: 20240514
  2. MINOXIDIL [Suspect]
     Active Substance: MINOXIDIL
     Dosage: 1 ML BID
     Route: 048
     Dates: start: 20240617
  3. ROSEMARY OIL [Concomitant]
     Active Substance: ROSEMARY OIL
     Indication: Hair growth abnormal
     Dosage: UNK
     Route: 065

REACTIONS (1)
  - Alopecia [Not Recovered/Not Resolved]

NARRATIVE: CASE EVENT DATE: 20240622
